FAERS Safety Report 21633371 (Version 2)
Quarter: 2023Q2

REPORT INFORMATION
  Report Type: Report from Study
  Country: US (occurrence: US)
  Receive Date: 20221123
  Receipt Date: 20230615
  Transmission Date: 20230722
  Serious: No
  Sender: FDA-Public Use
  Company Number: US-ABBVIE-22K-163-4378928-00

PATIENT
  Sex: Male

DRUGS (2)
  1. IMBRUVICA [Suspect]
     Active Substance: IBRUTINIB
     Indication: Chronic lymphocytic leukaemia
     Route: 048
     Dates: start: 20190919
  2. IMBRUVICA [Suspect]
     Active Substance: IBRUTINIB
     Indication: Chronic lymphocytic leukaemia
     Route: 048
     Dates: start: 202002

REACTIONS (16)
  - Arthritis [Unknown]
  - Depression [Unknown]
  - Contusion [Unknown]
  - Red blood cell count decreased [Unknown]
  - Onychoclasis [Unknown]
  - Agitation [Unknown]
  - Hepatic enzyme increased [Unknown]
  - Anger [Unknown]
  - Exostosis [Unknown]
  - Skin haemorrhage [Unknown]
  - Platelet count decreased [Unknown]
  - Scratch [Unknown]
  - Scab [Unknown]
  - Erythema [Unknown]
  - Nerve compression [Unknown]
  - Neuralgia [Unknown]
